FAERS Safety Report 7949841-4 (Version None)
Quarter: 2011Q4

REPORT INFORMATION
  Report Type: 
  Country: None (occurrence: None)
  Receive Date: 20111130
  Receipt Date: 20111128
  Transmission Date: 20120403
  Serious: Yes (Hospitalization, Other)
  Sender: FDA-Public Use
  Company Number: BR-ABBOTT-11P-020-0703468-00

PATIENT
  Sex: Female
  Weight: 42 kg

DRUGS (3)
  1. LORAZEPAM [Concomitant]
     Indication: SEDATIVE THERAPY
     Route: 048
     Dates: start: 20101201
  2. HUMIRA [Suspect]
     Indication: CROHN'S DISEASE
     Dosage: INDUCTION DOSE
     Route: 058
     Dates: start: 20090101
  3. HUMIRA [Suspect]
     Dosage: 15 DAYS LATER
     Dates: end: 20101201

REACTIONS (10)
  - PURULENT DISCHARGE [None]
  - GROIN ABSCESS [None]
  - WOUND SECRETION [None]
  - INTESTINAL PERFORATION [None]
  - CONVULSION [None]
  - DIARRHOEA [None]
  - POSTOPERATIVE WOUND INFECTION [None]
  - NOSOCOMIAL INFECTION [None]
  - SUTURE RUPTURE [None]
  - WEIGHT DECREASED [None]
